FAERS Safety Report 6734624-3 (Version None)
Quarter: 2010Q2

REPORT INFORMATION
  Report Type: 
  Country: None (occurrence: None)
  Receive Date: 20100520
  Receipt Date: 20100507
  Transmission Date: 20101027
  Serious: Yes (Hospitalization)
  Sender: FDA-Public Use
  Company Number: AU-GENENTECH-298710

PATIENT
  Sex: Male
  Weight: 111.9 kg

DRUGS (2)
  1. RITUXIMAB [Suspect]
     Indication: IDIOPATHIC THROMBOCYTOPENIC PURPURA
     Dosage: 1000 MG, DAYS 1+15
     Route: 042
     Dates: start: 20100212, end: 20100220
  2. WARFARIN SODIUM [Suspect]
     Indication: DRUG USE FOR UNKNOWN INDICATION
     Route: 065

REACTIONS (2)
  - SUBDURAL HAEMATOMA [None]
  - SUBDURAL HAEMORRHAGE [None]
